FAERS Safety Report 16163155 (Version 1)
Quarter: 2019Q2

REPORT INFORMATION
  Report Type: Spontaneous
  Country: US (occurrence: US)
  Receive Date: 20190404
  Receipt Date: 20190404
  Transmission Date: 20190711
  Serious: Yes (Disabling, Other)
  Sender: FDA-Public Use
  Company Number: None

PATIENT
  Age: 4 Year
  Sex: Female
  Weight: 22.5 kg

DRUGS (1)
  1. POLYETHYLENE GLYCOL 3350. [Suspect]
     Active Substance: POLYETHYLENE GLYCOL 3350
     Indication: CONSTIPATION
     Dosage: ?          QUANTITY:1 CAPFUL;?
     Route: 048

REACTIONS (8)
  - Social avoidant behaviour [None]
  - Anxiety [None]
  - Constipation [None]
  - Aggression [None]
  - Developmental delay [None]
  - Obsessive-compulsive symptom [None]
  - Intentional self-injury [None]
  - Communication disorder [None]

NARRATIVE: CASE EVENT DATE: 20181001
